FAERS Safety Report 8974668 (Version 1)
Quarter: 2012Q4

REPORT INFORMATION
  Report Type: Report from Study
  Country: GB (occurrence: GB)
  Receive Date: 20121220
  Receipt Date: 20121220
  Transmission Date: 20130627
  Serious: Yes (Hospitalization)
  Sender: FDA-Public Use
  Company Number: GB-AMGEN-GBRCT2012080628

PATIENT
  Age: 49 Year
  Sex: Female
  Weight: 73.9 kg

DRUGS (7)
  1. ETANERCEPT [Suspect]
     Indication: PRODUCT USED FOR UNKNOWN INDICATION
     Dosage: 50 mg, qwk
     Dates: start: 20111219, end: 20120924
  2. SOLPADOL [Concomitant]
     Dosage: UNK
     Dates: start: 20100101
  3. METHOTREXATE [Concomitant]
     Dosage: UNK
     Dates: start: 20120424, end: 20120924
  4. PREDNISOLONE [Concomitant]
     Dosage: UNK
     Dates: start: 20120611
  5. CHLORPHENAMINE [Concomitant]
     Dosage: UNK
     Dates: start: 20120611
  6. CO-CODAMOL [Concomitant]
     Dosage: UNK
     Dates: start: 20120611
  7. OMEPRAZOLE [Concomitant]
     Dosage: UNK
     Dates: start: 20120611

REACTIONS (4)
  - Eczema [Not Recovered/Not Resolved]
  - Dermatitis allergic [Not Recovered/Not Resolved]
  - Food allergy [Not Recovered/Not Resolved]
  - Psoriasis [Not Recovered/Not Resolved]
